FAERS Safety Report 7190526-2 (Version None)
Quarter: 2010Q4

REPORT INFORMATION
  Report Type: 
  Country: None (occurrence: None)
  Receive Date: 20101223
  Receipt Date: 20101215
  Transmission Date: 20110411
  Serious: Yes (Hospitalization)
  Sender: FDA-Public Use
  Company Number: US-SANOFI-AVENTIS-2010SA077218

PATIENT
  Sex: Male

DRUGS (2)
  1. DDAVP [Suspect]
     Route: 048
  2. DDAVP [Suspect]
     Route: 065

REACTIONS (1)
  - HOSPITALISATION [None]
